FAERS Safety Report 22294284 (Version 1)
Quarter: 2023Q2

REPORT INFORMATION
  Report Type: Spontaneous
  Country: CA (occurrence: CA)
  Receive Date: 20230508
  Receipt Date: 20230508
  Transmission Date: 20230722
  Serious: Yes (Other)
  Sender: FDA-Public Use
  Company Number: CA-JNJFOC-20230511407

PATIENT
  Age: 38 Year
  Sex: Female
  Weight: 74 kg

DRUGS (14)
  1. REMICADE [Suspect]
     Active Substance: INFLIXIMAB
     Indication: Crohn^s disease
     Route: 041
  2. INFLIXIMAB [Suspect]
     Active Substance: INFLIXIMAB
     Indication: Crohn^s disease
     Route: 042
  3. INFLIXIMAB [Suspect]
     Active Substance: INFLIXIMAB
     Route: 042
  4. INFLIXIMAB [Suspect]
     Active Substance: INFLIXIMAB
     Route: 042
  5. INFLIXIMAB [Suspect]
     Active Substance: INFLIXIMAB
     Route: 042
  6. INFLIXIMAB [Suspect]
     Active Substance: INFLIXIMAB
     Route: 042
  7. INFLIXIMAB [Suspect]
     Active Substance: INFLIXIMAB
     Route: 042
  8. INSULIN ASPART [Concomitant]
     Active Substance: INSULIN ASPART
  9. LEVEMIR [Concomitant]
     Active Substance: INSULIN DETEMIR
     Route: 058
  10. MELATONIN [Concomitant]
     Active Substance: MELATONIN
  11. METHOTREXATE [Concomitant]
     Active Substance: METHOTREXATE
     Route: 048
  12. RAMIPRIL [Concomitant]
     Active Substance: RAMIPRIL
  13. SYNTHROID [Concomitant]
     Active Substance: LEVOTHYROXINE SODIUM
  14. TYLENOL [Concomitant]
     Active Substance: ACETAMINOPHEN

REACTIONS (11)
  - Drug level increased [Not Recovered/Not Resolved]
  - Illness [Not Recovered/Not Resolved]
  - Mouth ulceration [Not Recovered/Not Resolved]
  - Oropharyngeal pain [Not Recovered/Not Resolved]
  - Cough [Not Recovered/Not Resolved]
  - Arthralgia [Not Recovered/Not Resolved]
  - Condition aggravated [Not Recovered/Not Resolved]
  - Pain [Not Recovered/Not Resolved]
  - Pyrexia [Not Recovered/Not Resolved]
  - Viral infection [Not Recovered/Not Resolved]
  - Off label use [Not Recovered/Not Resolved]
